FAERS Safety Report 5366817-4 (Version None)
Quarter: 2007Q2

REPORT INFORMATION
  Report Type: 
  Country: None (occurrence: None)
  Receive Date: 20070622
  Receipt Date: 20070103
  Transmission Date: 20071010
  Serious: No
  Sender: FDA-Public Use
  Company Number: A0634370A

PATIENT
  Sex: Male

DRUGS (2)
  1. ZYBAN [Suspect]
     Dosage: 300MG PER DAY
     Route: 048
  2. 5-HYDROXYTRYPTOPHAN [Concomitant]

REACTIONS (2)
  - NAUSEA [None]
  - VOMITING [None]
